FAERS Safety Report 9549013 (Version 2)
Quarter: 2013Q4

REPORT INFORMATION
  Report Type: Spontaneous
  Country: JP (occurrence: JP)
  Receive Date: 20130924
  Receipt Date: 20131014
  Transmission Date: 20140711
  Serious: Yes (Other)
  Sender: FDA-Public Use
  Company Number: JP-PFIZER INC-2013274074

PATIENT
  Age: 75 Year
  Sex: Female

DRUGS (12)
  1. WYPAX [Suspect]
     Dosage: 0.5 MG, 2X/DAY
     Route: 048
     Dates: start: 20130903, end: 20130906
  2. WYPAX [Suspect]
     Dosage: 0.5 MG, 1X/DAY
     Route: 048
     Dates: start: 20130907, end: 20130913
  3. LYRICA [Concomitant]
     Dosage: UNK
     Route: 048
     Dates: start: 20130903
  4. MICARDIS [Concomitant]
     Dosage: UNK
     Route: 048
  5. LOXOPROFEN [Concomitant]
     Dosage: UNK
     Route: 048
  6. PLAVIX [Concomitant]
     Dosage: UNK
     Route: 048
  7. AZULFIDINE [Concomitant]
     Dosage: UNK
     Route: 048
  8. MECOBALAMIN [Concomitant]
  9. DILTIAZEM [Concomitant]
  10. PREDONINE [Concomitant]
  11. DOXAZOSIN [Concomitant]
  12. PAROXETINE [Concomitant]

REACTIONS (2)
  - Delirium [Unknown]
  - Dizziness [Unknown]
